FAERS Safety Report 17253655 (Version 2)
Quarter: 2020Q1

REPORT INFORMATION
  Report Type: Report from Study
  Country: CL (occurrence: CL)
  Receive Date: 20200109
  Receipt Date: 20200116
  Transmission Date: 20200409
  Serious: Yes (Hospitalization)
  Sender: FDA-Public Use
  Company Number: CL-EISAI MEDICAL RESEARCH-EC-2020-068225

PATIENT
  Age: 82 Year
  Sex: Male
  Weight: 88.2 kg

DRUGS (19)
  1. HYDROCHLOROTHIAZIDE. [Concomitant]
     Active Substance: HYDROCHLOROTHIAZIDE
     Dates: start: 20000101, end: 20191113
  2. FOLIC ACID. [Concomitant]
     Active Substance: FOLIC ACID
     Dates: start: 20191017, end: 20191017
  3. VITAMINS [Concomitant]
     Active Substance: VITAMINS
     Dates: start: 20191017, end: 20191017
  4. AKYNZEO [Concomitant]
     Active Substance: NETUPITANT\PALONOSETRON HYDROCHLORIDE
     Dates: start: 20191024, end: 20191024
  5. ATENOLOL. [Concomitant]
     Active Substance: ATENOLOL
     Dates: start: 200001
  6. PLACEBO [Suspect]
     Active Substance: UNSPECIFIED INGREDIENT
     Indication: NON-SMALL CELL LUNG CANCER METASTATIC
     Route: 048
     Dates: start: 20191024, end: 20191030
  7. PEMBROLIZUMAB. [Suspect]
     Active Substance: PEMBROLIZUMAB
     Indication: NON-SMALL CELL LUNG CANCER METASTATIC
     Route: 041
     Dates: start: 20191024, end: 20191024
  8. DOMPERIDONE [Concomitant]
     Active Substance: DOMPERIDONE
     Dates: start: 20191017, end: 20191017
  9. CARBOPLATIN. [Suspect]
     Active Substance: CARBOPLATIN
     Indication: NON-SMALL CELL LUNG CANCER METASTATIC
     Dosage: (AUC) 5 MG/ML/MIN
     Route: 041
     Dates: start: 20191024, end: 20191024
  10. CARBOPLATIN. [Suspect]
     Active Substance: CARBOPLATIN
     Dosage: (AUC) 5 MG/ML/MIN
     Route: 041
     Dates: start: 20191121
  11. DEXAMETHASONE. [Concomitant]
     Active Substance: DEXAMETHASONE
     Dates: start: 20191024, end: 20191024
  12. PEMETREXED. [Suspect]
     Active Substance: PEMETREXED
     Indication: NON-SMALL CELL LUNG CANCER METASTATIC
     Route: 041
     Dates: start: 20191024, end: 20191024
  13. PEMBROLIZUMAB. [Suspect]
     Active Substance: PEMBROLIZUMAB
     Route: 041
     Dates: start: 20191121
  14. TAMSULOSIN HYDROCHLORIDE. [Concomitant]
     Active Substance: TAMSULOSIN HYDROCHLORIDE
     Dates: start: 20000101
  15. DENOSUMAB [Concomitant]
     Active Substance: DENOSUMAB
     Dates: start: 20190828
  16. PEMETREXED. [Suspect]
     Active Substance: PEMETREXED
     Route: 041
     Dates: start: 20191121
  17. ALLOPURINOL. [Concomitant]
     Active Substance: ALLOPURINOL
     Dates: start: 20190828
  18. ATORVASTATIN [Concomitant]
     Active Substance: ATORVASTATIN
     Dates: start: 200001
  19. ASPIRIN. [Concomitant]
     Active Substance: ASPIRIN
     Dates: start: 200001

REACTIONS (1)
  - Upper gastrointestinal haemorrhage [Recovered/Resolved]

NARRATIVE: CASE EVENT DATE: 20191030
